FAERS Safety Report 9998590 (Version 1)
Quarter: 2014Q1

REPORT INFORMATION
  Report Type: Spontaneous
  Country: US (occurrence: US)
  Receive Date: 20140312
  Receipt Date: 20140312
  Transmission Date: 20141002
  Serious: No
  Sender: FDA-Public Use
  Company Number: US-BIOGENIDEC-2014BI018998

PATIENT
  Age: 59 Year
  Sex: Female

DRUGS (10)
  1. TECFIDERA [Suspect]
     Indication: MULTIPLE SCLEROSIS
     Route: 048
  2. AMLODIPINE BESYLATE [Concomitant]
  3. ASPIRIN ADULT LOW STRENGTH [Concomitant]
  4. CLONIDINE HCL ER [Concomitant]
  5. COMPLETE SENIOR [Concomitant]
  6. GABAPENTIN [Concomitant]
  7. POTASSIUM CHLORIDE ER [Concomitant]
  8. SIMVASTATIN [Concomitant]
  9. TIZANIDINE HCL [Concomitant]
  10. VITAMIN B12 [Concomitant]

REACTIONS (1)
  - Chills [Unknown]
